FAERS Safety Report 18200225 (Version 1)
Quarter: 2020Q3

REPORT INFORMATION
  Report Type: Report from Study
  Country: CO (occurrence: CO)
  Receive Date: 20200826
  Receipt Date: 20200826
  Transmission Date: 20201103
  Serious: Yes (Other)
  Sender: FDA-Public Use
  Company Number: NVSC2020CO228597

PATIENT
  Sex: Male
  Weight: 48 kg

DRUGS (6)
  1. XOLAIR [Suspect]
     Active Substance: OMALIZUMAB
     Indication: PRODUCT USED FOR UNKNOWN INDICATION
     Dosage: 450 MG, QMO
     Route: 058
     Dates: start: 20190805
  2. RELESTAT [Concomitant]
     Active Substance: EPINASTINE HYDROCHLORIDE
     Indication: CONJUNCTIVITIS
     Dosage: 1 DRP, PRN, STARTS 2 YEARS AGO
     Route: 031
  3. BUDESONIDE. [Concomitant]
     Active Substance: BUDESONIDE
     Indication: ASTHMA
     Dosage: UNK, Q12H, 2 PUFF, STARTS 3 YEARS AGO
     Route: 048
  4. MONTELUKAST [Suspect]
     Active Substance: MONTELUKAST SODIUM
     Indication: ASTHMA
     Dosage: 5 MG, QD, 2 YEARS AGO
     Route: 048
  5. SALBUTAMOL [Suspect]
     Active Substance: ALBUTEROL
     Indication: ASTHMA
     Dosage: UNK, PRN, START 3 YEARS AGO, 2 OR 3 PUFF
     Route: 065
  6. FLUTICASONE. [Concomitant]
     Active Substance: FLUTICASONE
     Indication: RHINITIS
     Dosage: UNK, QD, 1 PUFF IN EACH NOSTRIL, STARTS 3 YEARS AGO
     Route: 045

REACTIONS (7)
  - Crying [Unknown]
  - Pulmonary pain [Unknown]
  - Headache [Recovered/Resolved]
  - Nasal turbinate hypertrophy [Unknown]
  - Pain [Unknown]
  - Product dose omission issue [Unknown]
  - Dyspnoea [Unknown]
